FAERS Safety Report 8534811 (Version 6)
Quarter: 2013Q3

REPORT INFORMATION
  Report Type: Spontaneous
  Country: US (occurrence: US)
  Receive Date: 20120427
  Receipt Date: 20130926
  Transmission Date: 20140515
  Serious: Yes (Other)
  Sender: FDA-Public Use
  Company Number: US-JNJFOC-20120410104

PATIENT
  Sex: Male

DRUGS (2)
  1. ROGAINE FOAM [Suspect]
     Route: 061
  2. ROGAINE FOAM [Suspect]
     Indication: ALOPECIA
     Route: 061
     Dates: start: 20110425

REACTIONS (7)
  - Panic disorder without agoraphobia [Unknown]
  - Dermatosis [Unknown]
  - Burns second degree [Unknown]
  - Phobia [Unknown]
  - Adjustment disorder with mixed anxiety and depressed mood [Unknown]
  - Wrong technique in drug usage process [Unknown]
  - Product label issue [Unknown]
